FAERS Safety Report 7823214 (Version 4)
Quarter: 2017Q4

REPORT INFORMATION
  Report Type: Spontaneous
  Country: DE (occurrence: DE)
  Receive Date: 20110223
  Receipt Date: 20171103
  Transmission Date: 20180321
  Serious: Yes (Other)
  Sender: FDA-Public Use
  Company Number: DE-BRISTOL-MYERS SQUIBB COMPANY-15556178

PATIENT
  Age: 7 Month
  Sex: Male

DRUGS (1)
  1. BARACLUDE [Suspect]
     Active Substance: ENTECAVIR
     Indication: PRODUCT USED FOR UNKNOWN INDICATION
     Dosage: .5 MG, QD
     Route: 050
     Dates: start: 2007

REACTIONS (2)
  - Paternal exposure timing unspecified [Recovered/Resolved]
  - Chronic myeloid leukaemia [Unknown]
